FAERS Safety Report 9183128 (Version 1)
Quarter: 2013Q1

REPORT INFORMATION
  Report Type: Spontaneous
  Country: US (occurrence: US)
  Receive Date: 20130322
  Receipt Date: 20130322
  Transmission Date: 20140127
  Serious: No
  Sender: FDA-Public Use
  Company Number: US-BRISTOL-MYERS SQUIBB COMPANY-16383507

PATIENT
  Age: 75 Year
  Sex: Male
  Weight: 76 kg

DRUGS (2)
  1. ERBITUX [Suspect]
     Indication: SQUAMOUS CELL CARCINOMA
     Dosage: 2ND TREATMENT 30JA12
     Dates: start: 20120123
  2. TYLENOL [Concomitant]

REACTIONS (1)
  - Nasopharyngitis [Unknown]
